FAERS Safety Report 8174251-7 (Version None)
Quarter: 2012Q1

REPORT INFORMATION
  Report Type: 
  Country: None (occurrence: None)
  Receive Date: 20120229
  Receipt Date: 20120217
  Transmission Date: 20120608
  Serious: Yes (Hospitalization)
  Sender: FDA-Public Use
  Company Number: FR-CELGENEUS-056-21880-12022136

PATIENT
  Sex: Female

DRUGS (3)
  1. DEXAMETHASONE [Suspect]
     Route: 048
     Dates: start: 20120116
  2. ROCEPHIN [Concomitant]
     Indication: BRONCHITIS
     Route: 065
     Dates: start: 20111201
  3. REVLIMID [Suspect]
     Dosage: 25 MILLIGRAM
     Route: 048
     Dates: start: 20120116

REACTIONS (1)
  - LUNG DISORDER [None]
